FAERS Safety Report 10073239 (Version 1)
Quarter: 2014Q2

REPORT INFORMATION
  Report Type: Spontaneous
  Country: US (occurrence: US)
  Receive Date: 20140411
  Receipt Date: 20140411
  Transmission Date: 20141212
  Serious: Yes (Other)
  Sender: FDA-Public Use
  Company Number: US-BAYER-2014-050434

PATIENT
  Age: 59 Year
  Sex: Male
  Weight: 91 kg

DRUGS (7)
  1. BAYER GENUINE ASPIRIN ORIGINAL STRENGTH [Suspect]
     Indication: CEREBROVASCULAR ACCIDENT
     Dosage: 2 DF, PRN
     Route: 048
     Dates: start: 1976
  2. ALKA-SELTZER ORIGINAL [Suspect]
     Indication: DYSPEPSIA
     Dosage: 2 DF, PRN
     Route: 048
  3. NEXIUM [Concomitant]
  4. XANAX [Concomitant]
  5. PHENERGAN [Concomitant]
  6. BUSPAR [Concomitant]
  7. VITAMIN D [Concomitant]

REACTIONS (9)
  - Vision blurred [Not Recovered/Not Resolved]
  - Memory impairment [Not Recovered/Not Resolved]
  - Therapeutic response changed [None]
  - Expired product administered [None]
  - Gastric disorder [None]
  - Off label use [None]
  - Fatigue [Not Recovered/Not Resolved]
  - Incorrect drug administration duration [None]
  - Wrong technique in drug usage process [None]
